FAERS Safety Report 11064157 (Version 1)
Quarter: 2015Q2

REPORT INFORMATION
  Report Type: Spontaneous
  Country: US (occurrence: US)
  Receive Date: 20150424
  Receipt Date: 20150424
  Transmission Date: 20150821
  Serious: No
  Sender: FDA-Public Use
  Company Number: US-ALKERMES INC.-ALK-2015-004355

PATIENT

DRUGS (2)
  1. BENZODIAZEPINE RELATED DRUGS [Concomitant]
     Active Substance: BENZODIAZEPINE
     Indication: PRODUCT USED FOR UNKNOWN INDICATION
     Dosage: UNK
     Dates: start: 201502
  2. VIVITROL [Suspect]
     Active Substance: NALTREXONE
     Indication: DRUG DEPENDENCE
     Dosage: 190 MG, Q2WK
     Route: 030
     Dates: start: 201502

REACTIONS (7)
  - Drug abuse [Unknown]
  - Inappropriate schedule of drug administration [Recovered/Resolved]
  - Abnormal behaviour [Unknown]
  - Euphoric mood [Unknown]
  - Mydriasis [Unknown]
  - Drug administration error [Recovered/Resolved]
  - Drug dependence [Unknown]

NARRATIVE: CASE EVENT DATE: 201502
